FAERS Safety Report 12062143 (Version 3)
Quarter: 2016Q2

REPORT INFORMATION
  Report Type: Spontaneous
  Country: JP (occurrence: JP)
  Receive Date: 20160210
  Receipt Date: 20160519
  Transmission Date: 20160815
  Serious: Yes (Other)
  Sender: FDA-Public Use
  Company Number: JP-PFIZER INC-2016071498

PATIENT
  Age: 3 Month
  Sex: Male

DRUGS (1)
  1. ZOSYN [Suspect]
     Active Substance: PIPERACILLIN SODIUM\TAZOBACTAM SODIUM
     Dosage: UNK
     Route: 041

REACTIONS (3)
  - Vomiting [Recovered/Resolved]
  - Injection site erosion [Recovered/Resolved]
  - Haematochezia [Recovered/Resolved]
